FAERS Safety Report 9322599 (Version 2)
Quarter: 2013Q2

REPORT INFORMATION
  Report Type: Spontaneous
  Country: GB (occurrence: GB)
  Receive Date: 20130531
  Receipt Date: 20130531
  Transmission Date: 20140414
  Serious: Yes (Other)
  Sender: FDA-Public Use
  Company Number: GB-ASTRAZENECA-2013SE17808

PATIENT
  Age: 21 Year
  Sex: Female

DRUGS (5)
  1. QUETIAPINE XL [Suspect]
     Indication: MANIA
     Route: 048
     Dates: start: 20130305, end: 20130318
  2. QUETIAPINE XL [Suspect]
     Indication: MANIA
     Route: 048
  3. OLANZAPINE [Concomitant]
     Indication: AGITATION
     Dosage: 5-10 MG AS REQUIRED
     Route: 048
     Dates: start: 20130201, end: 20130311
  4. LORAZEPAM [Concomitant]
     Indication: AGITATION
     Dosage: 1 MG TDS
     Route: 048
     Dates: start: 20130201
  5. ZOPIDONE [Concomitant]
     Indication: INSOMNIA
     Dosage: 1.5 MG
     Route: 048
     Dates: start: 20130206

REACTIONS (1)
  - Electrocardiogram QT prolonged [Recovered/Resolved]
